FAERS Safety Report 18336783 (Version 4)
Quarter: 2020Q4

REPORT INFORMATION
  Report Type: Other
  Country: US (occurrence: US)
  Receive Date: 20201002
  Receipt Date: 20201208
  Transmission Date: 20210113
  Serious: Yes (Hospitalization)
  Sender: FDA-Public Use
  Company Number: US-INTERCEPT-PM2020001983

PATIENT

DRUGS (19)
  1. ROSUVASTATIN. [Concomitant]
     Active Substance: ROSUVASTATIN
  2. ANUCORT-HC [Concomitant]
     Active Substance: HYDROCORTISONE ACETATE
  3. PREDNISONE. [Concomitant]
     Active Substance: PREDNISONE
  4. TORSEMIDE. [Concomitant]
     Active Substance: TORSEMIDE
  5. XARELTO [Concomitant]
     Active Substance: RIVAROXABAN
  6. FEROSUL [Concomitant]
     Active Substance: FERROUS SULFATE
  7. ONDANSETRON [Concomitant]
     Active Substance: ONDANSETRON
  8. OCALIVA [Suspect]
     Active Substance: OBETICHOLIC ACID
     Indication: PRIMARY BILIARY CHOLANGITIS
     Dosage: 5 MILLIGRAM, QD
     Route: 048
     Dates: start: 20190128
  9. ATENOLOL. [Concomitant]
     Active Substance: ATENOLOL
  10. OMEPRAZOLE. [Concomitant]
     Active Substance: OMEPRAZOLE
  11. CEPHALEXIN                         /00145501/ [Concomitant]
     Active Substance: CEPHALEXIN
  12. ELIQUIS [Concomitant]
     Active Substance: APIXABAN
  13. OCALIVA [Suspect]
     Active Substance: OBETICHOLIC ACID
     Dosage: 5 MILLIGRAM, QOD
     Route: 048
     Dates: start: 2020, end: 2020
  14. OCALIVA [Suspect]
     Active Substance: OBETICHOLIC ACID
     Dosage: 5 MILLIGRAM, QD
     Route: 048
     Dates: start: 2020
  15. FUROSEMIDE. [Concomitant]
     Active Substance: FUROSEMIDE
  16. SODIUM BICARBONATE. [Concomitant]
     Active Substance: SODIUM BICARBONATE
  17. SPIRONOLACTONE. [Concomitant]
     Active Substance: SPIRONOLACTONE
  18. URSODIOL. [Concomitant]
     Active Substance: URSODIOL
  19. POTASSIUM CHLORIDE. [Concomitant]
     Active Substance: POTASSIUM CHLORIDE

REACTIONS (7)
  - Biliary cirrhosis [Not Recovered/Not Resolved]
  - Cardiac disorder [Not Recovered/Not Resolved]
  - Diarrhoea [Not Recovered/Not Resolved]
  - Liver disorder [Unknown]
  - Arteriovenous malformation [Not Recovered/Not Resolved]
  - Therapy interrupted [Recovered/Resolved]
  - Product dose omission issue [Unknown]

NARRATIVE: CASE EVENT DATE: 2020
